FAERS Safety Report 20460128 (Version 3)
Quarter: 2022Q2

REPORT INFORMATION
  Report Type: Other
  Country: IN (occurrence: None)
  Receive Date: 20220211
  Receipt Date: 20220620
  Transmission Date: 20220720
  Serious: Yes (Other)
  Sender: FDA-Public Use
  Company Number: IN-ROCHE-3022589

PATIENT
  Age: 59 Year
  Sex: Female

DRUGS (1)
  1. KADCYLA [Suspect]
     Active Substance: ADO-TRASTUZUMAB EMTANSINE
     Indication: Breast cancer metastatic
     Dosage: DOSE REDUCED 260 MG TO 250 MG, 260MG TO 270MG FROM THE NEXT CYCLE
     Route: 042

REACTIONS (3)
  - SARS-CoV-2 test positive [Unknown]
  - Weight decreased [Unknown]
  - Weight increased [Unknown]
